FAERS Safety Report 24089282 (Version 1)
Quarter: 2024Q3

REPORT INFORMATION
  Report Type: Spontaneous
  Country: GB (occurrence: GB)
  Receive Date: 20240715
  Receipt Date: 20240715
  Transmission Date: 20241016
  Serious: Yes (Other)
  Sender: CELLTRION
  Company Number: GB-CELLTRION INC.-2024GB016610

PATIENT

DRUGS (1)
  1. INFLIXIMAB [Suspect]
     Active Substance: INFLIXIMAB
     Indication: Psoriatic arthropathy
     Dosage: 5MG/KG EVERY 8 WEEKS
     Dates: start: 20200107, end: 20240325

REACTIONS (6)
  - Spinal cord disorder [Unknown]
  - Demyelination [Recovering/Resolving]
  - Alanine aminotransferase increased [Unknown]
  - Hypoaesthesia [Unknown]
  - Infection [Unknown]
  - Intentional dose omission [Unknown]
